FAERS Safety Report 19995838 (Version 3)
Quarter: 2024Q2

REPORT INFORMATION
  Report Type: Spontaneous
  Country: US (occurrence: US)
  Receive Date: 20211025
  Receipt Date: 20240416
  Transmission Date: 20240716
  Serious: No
  Sender: FDA-Public Use
  Company Number: US-INCYTE CORPORATION-2021IN009491

PATIENT

DRUGS (2)
  1. JAKAFI [Suspect]
     Active Substance: RUXOLITINIB
     Indication: Myeloproliferative neoplasm
     Dosage: 10 MILLIGRAM, BID
     Route: 048
     Dates: start: 202012
  2. JAKAFI [Suspect]
     Active Substance: RUXOLITINIB
     Dosage: 10 MILLIGRAM, BID
     Route: 065
     Dates: start: 202310

REACTIONS (3)
  - Eyelid infection [Unknown]
  - Immune system disorder [Unknown]
  - Off label use [Unknown]

NARRATIVE: CASE EVENT DATE: 20201201
